FAERS Safety Report 5420680-1 (Version None)
Quarter: 2007Q3

REPORT INFORMATION
  Report Type: 
  Country: None (occurrence: None)
  Receive Date: 20070816
  Receipt Date: 20070810
  Transmission Date: 20080115
  Serious: Yes (Hospitalization, Disabling)
  Sender: FDA-Public Use
  Company Number: TPG2007A00511

PATIENT
  Sex: Male

DRUGS (7)
  1. COMPETACT (PIOGLITAZONE HYDROCHLORIDE, METFORMIN HYDROCHLORIDE) PRIOR [Suspect]
     Indication: TYPE 2 DIABETES MELLITUS
     Dosage: PIOGLITAZONE 15 MG/METFORMIN 850 MG PER ORAL
     Route: 048
     Dates: start: 20070220
  2. GLYBURIDE [Concomitant]
  3. METOPROLOL TARTRATE [Concomitant]
  4. DIURETICS (DIURETIC) [Concomitant]
  5. DIGITOXIN TAB [Concomitant]
  6. ENAHEXAL COMP (HYDROCHLOROTHIAZIDE, ENALAPRIL MALEATE) [Concomitant]
  7. NITRENDIPINE (NITRENDIPINE) [Concomitant]

REACTIONS (3)
  - CEREBRAL INFARCTION [None]
  - DYSPHAGIA [None]
  - HYPERTENSION [None]
